FAERS Safety Report 8597450-9 (Version None)
Quarter: 2012Q3

REPORT INFORMATION
  Report Type: 
  Country: None (occurrence: None)
  Receive Date: 20120816
  Receipt Date: 20120809
  Transmission Date: 20120928
  Serious: Yes (Other)
  Sender: FDA-Public Use
  Company Number: CA-JNJFOC-20111011421

PATIENT
  Sex: Female

DRUGS (1)
  1. STELARA [Suspect]
     Indication: PSORIASIS
     Route: 058
     Dates: start: 20111017, end: 20120809

REACTIONS (6)
  - SKIN ULCER [None]
  - DIZZINESS [None]
  - PAIN IN EXTREMITY [None]
  - FUNGAL INFECTION [None]
  - NAUSEA [None]
  - CARDIOMEGALY [None]
